FAERS Safety Report 13061406 (Version 1)
Quarter: 2016Q4

REPORT INFORMATION
  Report Type: Spontaneous
  Country: US (occurrence: US)
  Receive Date: 20161226
  Receipt Date: 20161226
  Transmission Date: 20170207
  Serious: Yes (Other)
  Sender: FDA-Public Use
  Company Number: US-BRISTOL-MYERS SQUIBB COMPANY-BMS-2016-108901

PATIENT
  Sex: Male
  Weight: 88.9 kg

DRUGS (1)
  1. OPDIVO [Suspect]
     Active Substance: NIVOLUMAB
     Indication: LUNG NEOPLASM MALIGNANT
     Dosage: UNK
     Route: 042
     Dates: start: 201609

REACTIONS (4)
  - Abdominal pain upper [Unknown]
  - Renal pain [Unknown]
  - Haemoptysis [Unknown]
  - Decreased appetite [Unknown]
